FAERS Safety Report 7999240 (Version 5)
Quarter: 2012Q4

REPORT INFORMATION
  Report Type: 
  Country: US (occurrence: US)
  Receive Date: 20110621
  Receipt Date: 20120905
  Transmission Date: 20130627
  Serious: Yes (Death, Hospitalization, Other)
  Sender: FDA-Public Use
  Company Number: US-ELI_LILLY_AND_COMPANY-US201106003243

PATIENT
  Age: 78 Year
  Sex: Female
  Weight: 80.73 kg

DRUGS (23)
  1. FORTEO [Suspect]
     Indication: OSTEOPOROSIS
     Dosage: 20 ug, qd
     Route: 065
     Dates: start: 201105
  2. FORTEO [Suspect]
     Dosage: 20 ug, qd
     Route: 065
  3. FORTEO [Suspect]
     Dosage: 20 ug, qd
     Route: 065
  4. FORTEO [Suspect]
     Dosage: 20 ug, qd
     Route: 065
  5. FORTEO [Suspect]
     Dosage: 20 ug, qd
     Route: 065
  6. FORTEO [Suspect]
     Dosage: 20 ug, qd
     Route: 065
  7. SIMVASTATIN [Concomitant]
     Dosage: 40 mg, UNK
  8. VESICARE [Concomitant]
     Dosage: 10 mg, UNK
  9. LEVOTHYROXINE [Concomitant]
     Dosage: 100 mg, qd
  10. ALLOPURINOL [Concomitant]
     Dosage: 150 mg, qd
  11. AMLODIPINE [Concomitant]
     Dosage: 10 mg, UNK
  12. METOPROLOL [Concomitant]
     Dosage: 50 mg, UNK
  13. PLAVIX                             /01220701/ [Concomitant]
     Dosage: 75 mg, UNK
  14. VITAMIN D [Concomitant]
     Dosage: 1000 IU, qd
  15. VIT B12 [Concomitant]
     Dosage: 2000 mg, qd
  16. ARICEPT [Concomitant]
     Dosage: 10 mg, UNK
  17. ISOSORBIDE [Concomitant]
     Dosage: 60 mg, bid
  18. ASPIRIN [Concomitant]
     Dosage: 81 mg, qd
  19. FERROUS SULFATE [Concomitant]
     Dosage: 125 mg, qd
  20. ALPRAZOLAM [Concomitant]
     Dosage: 25 mg, UNK
  21. DEXLANSOPRAZOLE [Concomitant]
     Dosage: 60 mg, UNK
  22. HYOSCYAMINE [Concomitant]
     Dosage: 2 DF, qd
  23. STOOL SOFTENER [Concomitant]
     Dosage: 100 mg, UNK

REACTIONS (10)
  - Subdural haematoma [Fatal]
  - Myocardial infarction [Unknown]
  - Chest pain [Not Recovered/Not Resolved]
  - Flatulence [Unknown]
  - Dyspepsia [Unknown]
  - Malaise [Unknown]
  - Eructation [Unknown]
  - Ill-defined disorder [Unknown]
  - Back pain [Not Recovered/Not Resolved]
  - Nausea [Unknown]
